FAERS Safety Report 6660562-0 (Version None)
Quarter: 2010Q1

REPORT INFORMATION
  Report Type: 
  Country: None (occurrence: None)
  Receive Date: 20100331
  Receipt Date: 20100303
  Transmission Date: 20100710
  Serious: No
  Sender: FDA-Public Use
  Company Number: US-JNJFOC-20100109593

PATIENT
  Sex: Male
  Weight: 121.56 kg

DRUGS (5)
  1. INVEGA SUSTENNA [Suspect]
     Indication: SCHIZOAFFECTIVE DISORDER
     Route: 030
  2. RISPERDAL [Concomitant]
     Indication: SCHIZOAFFECTIVE DISORDER
     Dosage: 1 MG IN AM AND 1.5 MG AT BEDTIME
  3. RISPERDAL [Concomitant]
  4. LAMICTAL CD [Concomitant]
     Indication: SCHIZOAFFECTIVE DISORDER
  5. LAMICTAL CD [Concomitant]

REACTIONS (4)
  - DIZZINESS POSTURAL [None]
  - INCREASED APPETITE [None]
  - LIBIDO DECREASED [None]
  - TEMPERATURE INTOLERANCE [None]
